FAERS Safety Report 8013421-5 (Version None)
Quarter: 2011Q4

REPORT INFORMATION
  Report Type: 
  Country: None (occurrence: None)
  Receive Date: 20111229
  Receipt Date: 20111221
  Transmission Date: 20120403
  Serious: Yes (Other)
  Sender: FDA-Public Use
  Company Number: US-BAYER-2011-023804

PATIENT
  Age: 29 Year
  Sex: Female
  Weight: 58.957 kg

DRUGS (3)
  1. IBUPROFEN (ADVIL) [Concomitant]
  2. YAZ [Suspect]
     Dosage: UNK
     Dates: start: 19980101, end: 20090101
  3. IBUPROFEN [Concomitant]

REACTIONS (3)
  - PAIN [None]
  - GALLBLADDER DISORDER [None]
  - CHOLECYSTITIS CHRONIC [None]
